FAERS Safety Report 8916476 (Version 1)
Quarter: 2012Q4

REPORT INFORMATION
  Report Type: 
  Country: US (occurrence: US)
  Receive Date: 20121120
  Receipt Date: 20121120
  Transmission Date: 20130627
  Serious: Yes (Hospitalization, Other)
  Sender: FDA-Public Use
  Company Number: US-CELGENEUS-163-21880-12083231

PATIENT
  Age: 75 Year
  Sex: Female

DRUGS (8)
  1. REVLIMID [Suspect]
     Indication: MULTIPLE MYELOMA
     Dosage: 10 Milligram
     Route: 048
     Dates: start: 20120119
  2. GABAPENTIN [Concomitant]
     Indication: DRUG USE FOR UNKNOWN INDICATION
     Route: 065
  3. VITAMIN D [Concomitant]
     Indication: DRUG USE FOR UNKNOWN INDICATION
     Route: 065
  4. SENOKOT [Concomitant]
     Indication: CONSTIPATION
     Route: 065
  5. OMEGA 3 FISH OIL [Concomitant]
     Indication: DRUG USE FOR UNKNOWN INDICATION
     Route: 065
  6. ASPIRIN [Concomitant]
     Indication: DRUG USE FOR UNKNOWN INDICATION
     Route: 065
  7. IRON [Concomitant]
     Indication: SUPPLEMENTATION THERAPY
     Route: 041
  8. COLACE [Concomitant]
     Indication: CONSTIPATION
     Route: 065

REACTIONS (8)
  - Diabetic nephropathy [Unknown]
  - Vomiting [Unknown]
  - Diarrhoea [Unknown]
  - Drug dose omission [Unknown]
  - Dental caries [Unknown]
  - Nasopharyngitis [Unknown]
  - Anaemia [Unknown]
  - Constipation [Unknown]
